FAERS Safety Report 7619409-8 (Version None)
Quarter: 2011Q3

REPORT INFORMATION
  Report Type: 
  Country: None (occurrence: None)
  Receive Date: 20110719
  Receipt Date: 20110706
  Transmission Date: 20111222
  Serious: No
  Sender: FDA-Public Use
  Company Number: US-BIOGENIDEC-2010BI029805

PATIENT
  Age: 39 Year
  Sex: Female

DRUGS (2)
  1. BACLOFEN [Concomitant]
  2. TYSABRI [Suspect]
     Indication: MULTIPLE SCLEROSIS
     Route: 042
     Dates: start: 20100115

REACTIONS (3)
  - GAIT DISTURBANCE [None]
  - BALANCE DISORDER [None]
  - BACTERIAL TEST POSITIVE [None]
